FAERS Safety Report 21186660 (Version 2)
Quarter: 2022Q3

REPORT INFORMATION
  Report Type: Spontaneous
  Country: US (occurrence: US)
  Receive Date: 20220808
  Receipt Date: 20220826
  Transmission Date: 20221027
  Serious: No
  Sender: FDA-Public Use
  Company Number: US-PFIZER INC-202201041599

PATIENT
  Age: 47 Year
  Sex: Female
  Weight: 99.8 kg

DRUGS (5)
  1. PAXLOVID [Suspect]
     Active Substance: NIRMATRELVIR\RITONAVIR
     Indication: COVID-19 treatment
     Dosage: 3 DF, 2X/DAY (2 NIRMATRELVIR TABLETS AND RITONAVIR, TWICE A DAY)
     Route: 048
     Dates: start: 20220720, end: 20220725
  2. PRISTIQ EXTENDED-RELEASE [Concomitant]
     Active Substance: DESVENLAFAXINE SUCCINATE
     Dosage: 100 MG, 1X/DAY
     Route: 048
  3. NEXIUM [Concomitant]
     Active Substance: ESOMEPRAZOLE MAGNESIUM
     Dosage: 40 MG, 1X/DAY
     Route: 048
  4. SYNTHROID [Concomitant]
     Active Substance: LEVOTHYROXINE SODIUM
     Dosage: 100 UG, 1X/DAY
     Route: 048
  5. LIOTHYRONINE [LIOTHYRONINE SODIUM] [Concomitant]
     Dosage: 5 MCG, 1X/DAY
     Route: 048

REACTIONS (4)
  - COVID-19 [Recovered/Resolved]
  - Disease recurrence [Recovered/Resolved]
  - Acute sinusitis [Recovered/Resolved]
  - Post-acute COVID-19 syndrome [Recovered/Resolved]

NARRATIVE: CASE EVENT DATE: 20220729
